FAERS Safety Report 17859183 (Version 1)
Quarter: 2020Q2

REPORT INFORMATION
  Report Type: Spontaneous
  Country: US (occurrence: US)
  Receive Date: 20200603
  Receipt Date: 20200603
  Transmission Date: 20200714
  Serious: Yes (Other)
  Sender: FDA-Public Use
  Company Number: None

PATIENT
  Age: 60 Year
  Sex: Female
  Weight: 70.76 kg

DRUGS (3)
  1. ZETIA [Suspect]
     Active Substance: EZETIMIBE
  2. LIVALO [Suspect]
     Active Substance: PITAVASTATIN CALCIUM
  3. CRESTOR [Suspect]
     Active Substance: ROSUVASTATIN CALCIUM

REACTIONS (2)
  - Abdominal pain upper [None]
  - Drug intolerance [None]
